FAERS Safety Report 6086180-3 (Version None)
Quarter: 2009Q1

REPORT INFORMATION
  Report Type: 
  Country: None (occurrence: None)
  Receive Date: 20090220
  Receipt Date: 20090209
  Transmission Date: 20090719
  Serious: Yes (Hospitalization)
  Sender: FDA-Public Use
  Company Number: US-BAXTER-2009BH002385

PATIENT
  Sex: Female

DRUGS (4)
  1. DIANEAL [Suspect]
     Indication: PERITONEAL DIALYSIS
     Route: 033
     Dates: start: 20090201
  2. DIANEAL [Suspect]
     Route: 033
     Dates: end: 20090101
  3. DIANEAL [Suspect]
     Indication: PERITONEAL DIALYSIS
     Route: 033
     Dates: start: 20090201
  4. DIANEAL [Suspect]
     Route: 033
     Dates: end: 20090101

REACTIONS (2)
  - CATHETER RELATED COMPLICATION [None]
  - HIATUS HERNIA [None]
